FAERS Safety Report 22629625 (Version 1)
Quarter: 2023Q2

REPORT INFORMATION
  Report Type: Other
  Country: DE (occurrence: None)
  Receive Date: 20230622
  Receipt Date: 20230622
  Transmission Date: 20230722
  Serious: No
  Sender: FDA-Public Use
  Company Number: DE-ROCHE-3167443

PATIENT
  Sex: Female

DRUGS (13)
  1. OCREVUS [Suspect]
     Active Substance: OCRELIZUMAB
     Indication: Relapsing-remitting multiple sclerosis
     Route: 042
     Dates: start: 20220818
  2. OCREVUS [Suspect]
     Active Substance: OCRELIZUMAB
     Route: 042
  3. TELMISARTAN [Concomitant]
     Active Substance: TELMISARTAN
  4. PREGABALIN [Concomitant]
     Active Substance: PREGABALIN
  5. PREGABALIN [Concomitant]
     Active Substance: PREGABALIN
  6. BISOPROLOL [Concomitant]
     Active Substance: BISOPROLOL
  7. JODETTEN [Concomitant]
  8. PANTOPRAZOLE [Concomitant]
     Active Substance: PANTOPRAZOLE
  9. LEVOMIN (GERMANY) [Concomitant]
  10. FOSTER [Concomitant]
     Active Substance: BECLOMETHASONE\FORMOTEROL
  11. MAGNESIUM [Concomitant]
     Active Substance: MAGNESIUM
  12. NAPROXEN [Concomitant]
     Active Substance: NAPROXEN
  13. TORSEMIDE [Concomitant]
     Active Substance: TORSEMIDE

REACTIONS (5)
  - Asthenia [Recovered/Resolved]
  - Fatigue [Recovered/Resolved]
  - COVID-19 [Recovered/Resolved]
  - Nausea [Recovered/Resolved]
  - Vomiting [Recovered/Resolved]

NARRATIVE: CASE EVENT DATE: 20220818
